FAERS Safety Report 11020824 (Version 1)
Quarter: 2015Q2

REPORT INFORMATION
  Report Type: Spontaneous
  Country: US (occurrence: US)
  Receive Date: 20150413
  Receipt Date: 20150413
  Transmission Date: 20150821
  Serious: Yes (Death, Life-Threatening, Hospitalization, Other)
  Sender: FDA-Public Use
  Company Number: US-JNJFOC-20141209205

PATIENT
  Age: 67 Year
  Sex: Male

DRUGS (36)
  1. XARELTO [Suspect]
     Active Substance: RIVAROXABAN
     Indication: THROMBOSIS PROPHYLAXIS
     Route: 048
     Dates: start: 2013, end: 20140624
  2. COUMADIN [Suspect]
     Active Substance: WARFARIN SODIUM
     Indication: ANTICOAGULANT THERAPY
     Dosage: 128 MILLIGRAM
     Route: 065
     Dates: start: 20140623, end: 20140624
  3. LANTUS [Concomitant]
     Active Substance: INSULIN GLARGINE
     Indication: DIABETES MELLITUS
     Route: 065
     Dates: start: 2013
  4. DILTIZEM [Concomitant]
     Indication: HYPERTENSION
     Dosage: 28320
     Route: 065
     Dates: start: 20130620, end: 20140618
  5. INSULIN [Concomitant]
     Active Substance: INSULIN NOS
     Indication: DIABETES MELLITUS
     Dosage: 28320
     Route: 065
     Dates: start: 2014, end: 2014
  6. COLACE [Concomitant]
     Active Substance: DOCUSATE SODIUM
     Indication: PRODUCT USED FOR UNKNOWN INDICATION
     Dosage: 7600
     Route: 065
     Dates: start: 20140724, end: 20140724
  7. PROTONIX [Concomitant]
     Active Substance: PANTOPRAZOLE SODIUM
     Indication: PRODUCT USED FOR UNKNOWN INDICATION
     Dosage: 7600
     Route: 065
     Dates: start: 2014, end: 2014
  8. METFORMIN [Concomitant]
     Active Substance: METFORMIN HYDROCHLORIDE
     Indication: DIABETES MELLITUS
     Route: 048
  9. XARELTO [Suspect]
     Active Substance: RIVAROXABAN
     Indication: ANTICOAGULANT THERAPY
     Route: 048
     Dates: start: 2013, end: 20140624
  10. VISMODEGIB [Suspect]
     Active Substance: VISMODEGIB
     Indication: BASAL CELL CARCINOMA
     Dosage: INTERMITTENT TREATMENT WITH ORAL CAPSULES
     Route: 048
     Dates: end: 20140728
  11. ACETYLSALICYLIC ACID [Suspect]
     Active Substance: ASPIRIN
     Indication: ANTICOAGULANT THERAPY
     Route: 048
     Dates: start: 20130620, end: 2014
  12. VITAMIN D [Concomitant]
     Active Substance: CHOLECALCIFEROL
     Indication: PRODUCT USED FOR UNKNOWN INDICATION
     Dosage: 7600
     Route: 065
  13. METFORMIN [Concomitant]
     Active Substance: METFORMIN HYDROCHLORIDE
     Indication: DIABETES MELLITUS
     Route: 048
     Dates: start: 20140727, end: 20140728
  14. PRAVASTATIN [Concomitant]
     Active Substance: PRAVASTATIN\PRAVASTATIN SODIUM
     Indication: BLOOD CHOLESTEROL INCREASED
     Dosage: 28320
     Route: 065
     Dates: start: 20130805, end: 20140724
  15. DILTIZEM [Concomitant]
     Indication: ANGINA PECTORIS
     Dosage: 28320
     Route: 065
     Dates: start: 20130620, end: 20140618
  16. GLIBENCLAMIDE [Concomitant]
     Active Substance: GLYBURIDE
     Indication: DIABETES MELLITUS
     Route: 065
     Dates: start: 20140727, end: 2014
  17. GLIBENCLAMIDE [Concomitant]
     Active Substance: GLYBURIDE
     Indication: PROPHYLAXIS
     Dosage: 28320
     Route: 065
     Dates: start: 20140618
  18. SULFAMETHOXAZOLE [Concomitant]
     Active Substance: SULFAMETHOXAZOLE
     Indication: BRONCHITIS
     Dosage: 28320
     Route: 065
     Dates: start: 20140318, end: 20140409
  19. LOPRESSOR [Concomitant]
     Active Substance: METOPROLOL TARTRATE
     Indication: MYOCARDIAL INFARCTION
     Dosage: 7600
     Route: 065
     Dates: start: 20140512, end: 20140726
  20. APIXABAN [Concomitant]
     Active Substance: APIXABAN
     Indication: PRODUCT USED FOR UNKNOWN INDICATION
     Route: 065
  21. RANEXA [Concomitant]
     Active Substance: RANOLAZINE
     Indication: ATRIAL FIBRILLATION
     Route: 065
     Dates: start: 20130805, end: 20140623
  22. LANTUS [Concomitant]
     Active Substance: INSULIN GLARGINE
     Indication: DIABETES MELLITUS
     Route: 065
     Dates: start: 20140727, end: 2014
  23. PRAVASTATIN [Concomitant]
     Active Substance: PRAVASTATIN\PRAVASTATIN SODIUM
     Indication: HYPERLIPIDAEMIA
     Dosage: 28320
     Route: 065
     Dates: start: 20130805, end: 20140724
  24. CAPTOPRIL. [Concomitant]
     Active Substance: CAPTOPRIL
     Indication: HYPERTENSION
     Dosage: 28320
     Route: 048
     Dates: start: 2014, end: 2014
  25. VITAMIN B12 [Concomitant]
     Active Substance: CYANOCOBALAMIN
     Indication: SUPPLEMENTATION THERAPY
     Dosage: 28320
     Route: 065
     Dates: start: 20140609, end: 2014
  26. GLIBENCLAMIDE [Concomitant]
     Active Substance: GLYBURIDE
     Indication: DIABETES MELLITUS
     Dosage: 28320
     Route: 065
     Dates: start: 20140618
  27. GLIBENCLAMIDE [Concomitant]
     Active Substance: GLYBURIDE
     Indication: PROPHYLAXIS
     Route: 065
     Dates: start: 20140727, end: 2014
  28. NITROGLYCERIN. [Concomitant]
     Active Substance: NITROGLYCERIN
     Indication: PRODUCT USED FOR UNKNOWN INDICATION
     Dosage: 7600
     Route: 065
     Dates: start: 20140726, end: 20140726
  29. RANEXA [Concomitant]
     Active Substance: RANOLAZINE
     Indication: ARRHYTHMIA
     Route: 065
     Dates: start: 20130805, end: 20140623
  30. JENTADUETO [Concomitant]
     Active Substance: LINAGLIPTIN\METFORMIN HYDROCHLORIDE
     Indication: DIABETES MELLITUS
     Dosage: 28320
     Route: 065
     Dates: start: 20130621, end: 20140724
  31. VISMODEGIB [Suspect]
     Active Substance: VISMODEGIB
     Indication: BASAL CELL CARCINOMA
     Dosage: 128 MILLIGRAM
     Route: 048
     Dates: start: 20131126, end: 20140725
  32. RANEXA [Concomitant]
     Active Substance: RANOLAZINE
     Indication: ATRIAL FLUTTER
     Route: 065
     Dates: start: 20130805, end: 20140623
  33. SULFAMETHOXAZOLE [Concomitant]
     Active Substance: SULFAMETHOXAZOLE
     Indication: EAR INFECTION
     Dosage: 28320
     Route: 065
     Dates: start: 20140318, end: 20140409
  34. PLAVIX [Concomitant]
     Active Substance: CLOPIDOGREL BISULFATE
     Indication: PRODUCT USED FOR UNKNOWN INDICATION
     Dosage: 7600
     Route: 065
     Dates: start: 20140726, end: 20140726
  35. LASIX [Concomitant]
     Active Substance: FUROSEMIDE
     Indication: PRODUCT USED FOR UNKNOWN INDICATION
     Dosage: 7600
     Route: 065
     Dates: start: 20140726, end: 20140728
  36. SODIUM CHLORIDE. [Concomitant]
     Active Substance: SODIUM CHLORIDE
     Indication: PRODUCT USED FOR UNKNOWN INDICATION
     Dosage: 500ML/30ML/QH, TOTAL DAILY DOSE
     Route: 065
     Dates: start: 20140727, end: 201407

REACTIONS (10)
  - Myocardial infarction [Not Recovered/Not Resolved]
  - International normalised ratio increased [Recovered/Resolved]
  - Chest pain [Unknown]
  - Gastrooesophageal reflux disease [Unknown]
  - Acute respiratory failure [Unknown]
  - Dyspnoea [Unknown]
  - Acute hepatic failure [Not Recovered/Not Resolved]
  - Cardiogenic shock [Fatal]
  - Chest X-ray abnormal [Unknown]
  - Anaemia [Not Recovered/Not Resolved]

NARRATIVE: CASE EVENT DATE: 20140724
